FAERS Safety Report 9130906 (Version 1)
Quarter: 2013Q1

REPORT INFORMATION
  Report Type: Spontaneous
  Country: US (occurrence: US)
  Receive Date: 20130301
  Receipt Date: 20130301
  Transmission Date: 20140127
  Serious: No
  Sender: FDA-Public Use
  Company Number: US-MYLANLABS-2012S1021737

PATIENT
  Age: 77 Year
  Sex: Female
  Weight: 27.67 kg

DRUGS (3)
  1. METOPROLOL TARTRATE TABLETS, USP [Suspect]
     Indication: HYPERTENSION
     Dates: start: 201008
  2. SYMBICORT [Concomitant]
  3. OXYGEN [Concomitant]
     Indication: CHRONIC OBSTRUCTIVE PULMONARY DISEASE
     Dosage: CONTINUOUS
     Route: 045

REACTIONS (2)
  - Asthma [Not Recovered/Not Resolved]
  - Dyspnoea [Not Recovered/Not Resolved]
